FAERS Safety Report 7474407-2 (Version None)
Quarter: 2011Q2

REPORT INFORMATION
  Report Type: 
  Country: None (occurrence: None)
  Receive Date: 20110512
  Receipt Date: 20110429
  Transmission Date: 20111010
  Serious: Yes (Life-Threatening, Hospitalization, Other)
  Sender: FDA-Public Use
  Company Number: US-BAYER-2011-037179

PATIENT
  Sex: Female

DRUGS (1)
  1. AVELOX [Suspect]
     Indication: RESPIRATORY TRACT INFECTION
     Dosage: 400 MG, QD
     Route: 048
     Dates: start: 20110429, end: 20110429

REACTIONS (4)
  - ANAPHYLACTIC REACTION [None]
  - RASH [None]
  - PHARYNGEAL OEDEMA [None]
  - OEDEMA PERIPHERAL [None]
